FAERS Safety Report 4787704-6 (Version None)
Quarter: 2005Q3

REPORT INFORMATION
  Report Type: 
  Country: None (occurrence: None)
  Receive Date: 20050914
  Receipt Date: 20050122
  Transmission Date: 20060218
  Serious: Yes (Death, Hospitalization)
  Sender: FDA-Public Use
  Company Number: 163-20785-05010405

PATIENT
  Age: 44 Year
  Sex: Female
  Weight: 88 kg

DRUGS (4)
  1. THALOMID [Suspect]
     Indication: MALIGNANT MELANOMA
     Dosage: 200MG QD FOR 2 WEEKS, INCREASED BY 100MG QD AT 2-WK INTERVALS TO MAX OF 400MG QD; 8 WEEK CYCLE, PO
     Route: 048
     Dates: start: 20041210, end: 20050118
  2. THALOMID [Suspect]
     Indication: METASTATIC MALIGNANT MELANOMA
     Dosage: 200MG QD FOR 2 WEEKS, INCREASED BY 100MG QD AT 2-WK INTERVALS TO MAX OF 400MG QD; 8 WEEK CYCLE, PO
     Route: 048
     Dates: start: 20041210, end: 20050118
  3. TEMOZOLOMIDE (TEMOZOLOMIDE) (UNKNOWN) [Suspect]
     Indication: MALIGNANT MELANOMA
     Dosage: 75 MG/M2 DAILY FOR 6 WEEKS, EVERY 8 WEEKS, ORAL
     Route: 048
     Dates: start: 20041210, end: 20050118
  4. TEMOZOLOMIDE (TEMOZOLOMIDE) (UNKNOWN) [Suspect]
     Indication: METASTATIC MALIGNANT MELANOMA
     Dosage: 75 MG/M2 DAILY FOR 6 WEEKS, EVERY 8 WEEKS, ORAL
     Route: 048
     Dates: start: 20041210, end: 20050118

REACTIONS (7)
  - CHEST PAIN [None]
  - DEATH [None]
  - DISEASE PROGRESSION [None]
  - HYPOXIA [None]
  - OEDEMA PERIPHERAL [None]
  - PNEUMONIA [None]
  - PULMONARY EMBOLISM [None]
